FAERS Safety Report 6570684-0 (Version None)
Quarter: 2010Q1

REPORT INFORMATION
  Report Type: 
  Country: None (occurrence: None)
  Receive Date: 20100204
  Receipt Date: 20100131
  Transmission Date: 20100710
  Serious: Yes (Other)
  Sender: FDA-Public Use
  Company Number: A0842330A

PATIENT
  Age: 32 Year
  Sex: Female

DRUGS (1)
  1. MALARONE [Suspect]
     Indication: MALARIA PROPHYLAXIS
     Route: 048
     Dates: start: 20090101, end: 20090101

REACTIONS (3)
  - PSORIASIS [None]
  - SKIN HYPERPIGMENTATION [None]
  - SKIN REACTION [None]
